FAERS Safety Report 6911947-6 (Version None)
Quarter: 2010Q3

REPORT INFORMATION
  Report Type: 
  Country: None (occurrence: None)
  Receive Date: 20100806
  Receipt Date: 20071127
  Transmission Date: 20110219
  Serious: Yes (Other)
  Sender: FDA-Public Use
  Company Number: US-PFIZER INC-2007083040

PATIENT
  Sex: Male

DRUGS (2)
  1. NAVANE [Suspect]
     Indication: BIPOLAR DISORDER
  2. ANTIPSYCHOTICS [Concomitant]

REACTIONS (1)
  - MACULOPATHY [None]
